FAERS Safety Report 14393612 (Version 1)
Quarter: 2018Q1

REPORT INFORMATION
  Report Type: Spontaneous
  Country: US (occurrence: US)
  Receive Date: 20180115
  Receipt Date: 20180115
  Transmission Date: 20180509
  Serious: No
  Sender: FDA-Public Use
  Company Number: None

PATIENT
  Age: 67 Year
  Sex: Male
  Weight: 72 kg

DRUGS (4)
  1. IMITREX [Concomitant]
     Active Substance: SUMATRIPTAN SUCCINATE
  2. DOXAZOSIN MESYLATE. [Suspect]
     Active Substance: DOXAZOSIN MESYLATE
     Indication: PROSTATOMEGALY
     Dosage: ?          QUANTITY:30 TABLET(S);?
     Route: 048
     Dates: start: 20180109, end: 20180113
  3. MUCINEX [Concomitant]
     Active Substance: GUAIFENESIN
  4. DOXAZOSIN [Concomitant]
     Active Substance: DOXAZOSIN\DOXAZOSIN MESYLATE

REACTIONS (2)
  - Product substitution issue [None]
  - Drug ineffective [None]

NARRATIVE: CASE EVENT DATE: 20180111
